FAERS Safety Report 24811229 (Version 1)
Quarter: 2025Q1

REPORT INFORMATION
  Report Type: Spontaneous
  Country: US (occurrence: None)
  Receive Date: 20250105
  Receipt Date: 20250105
  Transmission Date: 20250409
  Serious: Yes (Disabling)
  Sender: FDA-CTU
  Company Number: None

PATIENT
  Age: 40 Year
  Sex: Female
  Weight: 58.5 kg

DRUGS (5)
  1. CIPROFLOXACIN [Suspect]
     Active Substance: CIPROFLOXACIN
     Dosage: OTHER QUANTITY : 1 TABLET(S);?FREQUENCY : EVERY 12 HOURS;?
     Route: 048
     Dates: start: 20231102, end: 20231105
  2. Pregabelin [Concomitant]
  3. VALIUM [Concomitant]
     Active Substance: DIAZEPAM
  4. OLANZAPINE [Concomitant]
     Active Substance: OLANZAPINE
  5. EFFEXOR [Concomitant]
     Active Substance: VENLAFAXINE HYDROCHLORIDE

REACTIONS (7)
  - Pain in extremity [None]
  - Pain in extremity [None]
  - Pain [None]
  - Fatigue [None]
  - Depression [None]
  - Asthenia [None]
  - Impaired quality of life [None]

NARRATIVE: CASE EVENT DATE: 20231102
